FAERS Safety Report 24951975 (Version 1)
Quarter: 2025Q1

REPORT INFORMATION
  Report Type: Spontaneous
  Country: US (occurrence: None)
  Receive Date: 20250207
  Receipt Date: 20250207
  Transmission Date: 20250409
  Serious: No
  Sender: FDA-CTU
  Company Number: None

PATIENT
  Sex: Female

DRUGS (2)
  1. ZEPBOUND [Suspect]
     Active Substance: TIRZEPATIDE
  2. WEGOVY [Suspect]
     Active Substance: SEMAGLUTIDE

REACTIONS (4)
  - Paraesthesia [None]
  - Skin irritation [None]
  - Hypoaesthesia [None]
  - Paraesthesia oral [None]
